FAERS Safety Report 16589862 (Version 1)
Quarter: 2019Q3

REPORT INFORMATION
  Report Type: Spontaneous
  Country: DE (occurrence: DE)
  Receive Date: 20190718
  Receipt Date: 20190718
  Transmission Date: 20191004
  Serious: Yes (Life-Threatening, Hospitalization)
  Sender: FDA-Public Use
  Company Number: DE-TEVA-2019-DE-1077999

PATIENT
  Age: 72 Year
  Sex: Male
  Weight: 80 kg

DRUGS (14)
  1. LEVODOPA/BENSERAZID [Concomitant]
     Active Substance: BENSERAZIDE\LEVODOPA
     Dosage: 100|25 MG, 1-0-0-0, TABLETS
     Route: 048
  2. CALCET 950MG [Concomitant]
     Dosage: 950 MG, 1-1-1-0, TABLETS
     Route: 048
  3. ASPIRIN. [Concomitant]
     Active Substance: ASPIRIN
     Dosage: 100 MG, 1-0-0-0, TABLETS
     Route: 048
  4. DECOSTRIOL INJECT 1 MICROGRAM/ML SOLUTION FOR INJECTION [Concomitant]
     Dosage: 2 MICROGRAMS / WEEK, 1X WEEKLY, SOLUTION FOR INJECTION/INFUSION
     Route: 042
  5. PREGABALIN. [Concomitant]
     Active Substance: PREGABALIN
     Dosage: 25 MG, 0-0-2-0, CAPSULES
     Route: 048
  6. FERRLECIT 62,5 MG [Concomitant]
     Dosage: 62.5 MG, 1X WEEKLY, SOLUTION FOR INJECTION/INFUSION
     Route: 042
  7. PANTOPRAZOL [Concomitant]
     Active Substance: PANTOPRAZOLE SODIUM
     Dosage: 40 MG, 1-0-0-0, TABLETS
     Route: 048
  8. MONURIL 3000 [Concomitant]
     Dosage: NK NK, IF NECESSARY, GRANULES
     Route: 048
  9. PREDNISOLONE. [Suspect]
     Active Substance: PREDNISOLONE
     Dosage: 5 MG, 1-0-0-0, TABLETS
     Route: 048
  10. LEVOTHYROXIN-NATRIUM [Concomitant]
     Active Substance: LEVOTHYROXINE SODIUM
     Dosage: 150 MICROGRAMS, 1-0-0-0, TABLETS
     Route: 048
  11. COTRIM 960-1A-PHARMA [Concomitant]
     Dosage: 160|800 MG, 3X WEEKLY (MON, WED, FRI), TABLETS
     Route: 048
  12. ERYTHROPOIETIN [Concomitant]
     Active Substance: ERYTHROPOIETIN
     Dosage: 60 MICROGRAMS / WEEK, EVERY 3 WEEKS, SOLUTION FOR INJECTION/INFUSION
     Route: 042
  13. METOPROLOL. [Concomitant]
     Active Substance: METOPROLOL
     Dosage: 47.5 MG, 0.5-0-0.5-0, TABLETS
     Route: 048
  14. SIMVASTATIN. [Concomitant]
     Active Substance: SIMVASTATIN
     Dosage: 40 MG, 0-0-1-0, TABLETS
     Route: 048

REACTIONS (4)
  - Dyspnoea [Unknown]
  - Cyanosis [Unknown]
  - Tachycardia [Unknown]
  - General physical health deterioration [Unknown]
